FAERS Safety Report 8580601-X (Version None)
Quarter: 2012Q3

REPORT INFORMATION
  Report Type: 
  Country: None (occurrence: None)
  Receive Date: 20120809
  Receipt Date: 20120731
  Transmission Date: 20120928
  Serious: Yes (Other)
  Sender: FDA-Public Use
  Company Number: TR-AMGEN-TURSP2012025028

PATIENT
  Age: 57 Year
  Sex: Male

DRUGS (1)
  1. ENBREL [Suspect]
     Indication: ANKYLOSING SPONDYLITIS
     Dosage: 50 MG, WEEKLY
     Route: 058
     Dates: start: 20120119, end: 20120517

REACTIONS (6)
  - LOSS OF CONSCIOUSNESS [None]
  - FALL [None]
  - BLADDER CANCER [None]
  - DIARRHOEA [None]
  - HAEMATURIA [None]
  - BACK PAIN [None]
